FAERS Safety Report 4608706-6 (Version None)
Quarter: 2005Q1

REPORT INFORMATION
  Report Type: 
  Country: None (occurrence: None)
  Receive Date: 20050315
  Receipt Date: 20050216
  Transmission Date: 20050727
  Serious: Yes (Other)
  Sender: FDA-Public Use
  Company Number: JP-ROCHE-396917

PATIENT
  Age: 90 Year
  Sex: Female

DRUGS (8)
  1. TAMIFLU [Suspect]
     Route: 048
     Dates: start: 20050208, end: 20050210
  2. TAMIFLU [Suspect]
     Route: 048
     Dates: start: 20050211, end: 20050211
  3. NEOPHYLLIN [Concomitant]
     Indication: DRUG USE FOR UNKNOWN INDICATION
     Route: 042
     Dates: start: 20050208, end: 20050211
  4. CAPTOPRIL [Concomitant]
     Indication: DRUG USE FOR UNKNOWN INDICATION
     Dosage: DRUG NAME REPORTED AS ^APOPRIL^
     Route: 048
     Dates: start: 20040115, end: 20050219
  5. UNSPECIFIED DRUG [Concomitant]
     Indication: DRUG USE FOR UNKNOWN INDICATION
     Dosage: DRUG NAME REPORTED AS ^DICANON^.
     Route: 048
     Dates: start: 20040115, end: 20050212
  6. MODACIN [Concomitant]
     Indication: DRUG USE FOR UNKNOWN INDICATION
     Route: 041
     Dates: start: 20050207, end: 20050210
  7. PIPERACILLIN SODIUM [Concomitant]
     Indication: DRUG USE FOR UNKNOWN INDICATION
     Dosage: DRUG NAME UNKNOWN
     Route: 041
     Dates: start: 20050207, end: 20050210
  8. FUROSEMIDE [Concomitant]
     Indication: DRUG USE FOR UNKNOWN INDICATION
     Dosage: DRUG NAME UNKNOWN
     Route: 048
     Dates: start: 20040724, end: 20050212

REACTIONS (2)
  - CARDIAC FAILURE ACUTE [None]
  - HAEMATEMESIS [None]
